FAERS Safety Report 5945795-0 (Version None)
Quarter: 2008Q4

REPORT INFORMATION
  Report Type: 
  Country: None (occurrence: None)
  Receive Date: 20081106
  Receipt Date: 20081021
  Transmission Date: 20090506
  Serious: Yes (Hospitalization, Disabling)
  Sender: FDA-Public Use
  Company Number: SPV1-2008-02314

PATIENT
  Age: 48 Year
  Sex: Female

DRUGS (1)
  1. PROAMATINE [Suspect]
     Indication: HYPOTENSION
     Dosage: 5 MG DAILY ON NON-HD DAYS; ON HD DAYS 5 MG PRIOR TO AND AFTER HD, ORAL
     Route: 048

REACTIONS (7)
  - DRY GANGRENE [None]
  - FOOT AMPUTATION [None]
  - INFECTION [None]
  - LEG AMPUTATION [None]
  - PERIPHERAL ISCHAEMIA [None]
  - SKIN NECROSIS [None]
  - SKIN ULCER [None]
